FAERS Safety Report 7148666-X (Version None)
Quarter: 2010Q4

REPORT INFORMATION
  Report Type: 
  Country: None (occurrence: None)
  Receive Date: 20101122
  Receipt Date: 20101115
  Transmission Date: 20110411
  Serious: Yes (Other)
  Sender: FDA-Public Use
  Company Number: 2010SP057472

PATIENT
  Age: 26 Year
  Sex: Female

DRUGS (1)
  1. DESLORATADINE AND PSEUDOEPHEDRINE SULFATE [Suspect]
     Indication: PRODUCT USED FOR UNKNOWN INDICATION

REACTIONS (4)
  - ALCOHOL USE [None]
  - HYPERVENTILATION [None]
  - PANIC ATTACK [None]
  - TACHYCARDIA [None]
